FAERS Safety Report 10501564 (Version 1)
Quarter: 2014Q4

REPORT INFORMATION
  Report Type: Spontaneous
  Country: US (occurrence: None)
  Receive Date: 20141006
  Receipt Date: 20141006
  Transmission Date: 20150528
  Serious: Yes (Other)
  Sender: FDA-Public Use
  Company Number: None

PATIENT
  Age: 63 Year
  Sex: Female
  Weight: 92.7 kg

DRUGS (2)
  1. ATENOLOL. [Suspect]
     Active Substance: ATENOLOL
     Indication: HYPERTENSION
     Dates: start: 20040715, end: 20060209
  2. ATENOLOL. [Suspect]
     Active Substance: ATENOLOL
     Indication: CARDIOVASCULAR DISORDER
     Dates: start: 20040715, end: 20060209

REACTIONS (4)
  - Retroperitoneal fibrosis [None]
  - Pain [None]
  - Dysuria [None]
  - Medical device complication [None]

NARRATIVE: CASE EVENT DATE: 20050401
